FAERS Safety Report 6490928-3 (Version None)
Quarter: 2009Q4

REPORT INFORMATION
  Report Type: 
  Country: None (occurrence: None)
  Receive Date: 20091211
  Receipt Date: 20090930
  Transmission Date: 20100525
  Serious: No
  Sender: FDA-Public Use
  Company Number: US-BAYER-200935944NA

PATIENT
  Age: 62 Year
  Sex: Female

DRUGS (6)
  1. ULTRAVIST 300 [Suspect]
     Indication: COMPUTERISED TOMOGRAM ABDOMEN
     Dosage: TOTAL DAILY DOSE: 85 ML  UNIT DOSE: 200 ML
     Route: 042
     Dates: start: 20090930, end: 20090930
  2. LYRICA [Concomitant]
  3. TOPROL-XL [Concomitant]
  4. ZOCOR [Concomitant]
  5. HYDROCHLOROTHIAZIDE [Concomitant]
  6. VOLUMEN [Concomitant]
     Route: 048
     Dates: start: 20090930, end: 20090930

REACTIONS (3)
  - DIZZINESS [None]
  - FEELING HOT [None]
  - THROAT TIGHTNESS [None]
